FAERS Safety Report 20101150 (Version 2)
Quarter: 2021Q4

REPORT INFORMATION
  Report Type: Other
  Country: CZ (occurrence: CZ)
  Receive Date: 20211123
  Receipt Date: 20211130
  Transmission Date: 20220303
  Serious: Yes (Other)
  Sender: FDA-Public Use
  Company Number: CZ-002147023-NVSC2021CZ253258

PATIENT
  Age: 65 Year
  Sex: Female

DRUGS (7)
  1. RITUXIMAB [Suspect]
     Active Substance: RITUXIMAB
     Indication: Marginal zone lymphoma
     Route: 065
     Dates: start: 201903, end: 201907
  2. RITUXIMAB [Suspect]
     Active Substance: RITUXIMAB
     Route: 065
     Dates: start: 202011
  3. RITUXIMAB [Suspect]
     Active Substance: RITUXIMAB
     Route: 065
  4. CYCLOPHOSPHAMIDE [Suspect]
     Active Substance: CYCLOPHOSPHAMIDE
     Indication: Marginal zone lymphoma
     Dosage: 6
     Route: 065
     Dates: start: 201903, end: 201907
  5. PREDNISONE [Suspect]
     Active Substance: PREDNISONE
     Indication: Marginal zone lymphoma
     Route: 065
     Dates: start: 201903, end: 201907
  6. VINCRISTINE SULFATE [Suspect]
     Active Substance: VINCRISTINE SULFATE
     Indication: Marginal zone lymphoma
     Route: 065
     Dates: start: 201903, end: 201907
  7. DOXORUBICIN HYDROCHLORIDE [Suspect]
     Active Substance: DOXORUBICIN HYDROCHLORIDE
     Indication: Marginal zone lymphoma
     Route: 065
     Dates: start: 201903, end: 201907

REACTIONS (7)
  - Concomitant disease aggravated [Recovered/Resolved]
  - Tremor [Recovered/Resolved]
  - Parkinson^s disease [Recovered/Resolved]
  - Cytopenia [Not Recovered/Not Resolved]
  - Marginal zone lymphoma recurrent [Unknown]
  - Nausea [Unknown]
  - Vomiting [Unknown]

NARRATIVE: CASE EVENT DATE: 20200901
